FAERS Safety Report 9618800 (Version 3)
Quarter: 2014Q1

REPORT INFORMATION
  Report Type: Spontaneous
  Country: GB (occurrence: GB)
  Receive Date: 20131014
  Receipt Date: 20140217
  Transmission Date: 20141002
  Serious: Yes (Death)
  Sender: FDA-Public Use
  Company Number: PHFR2013GB005755

PATIENT
  Age: 33 Year
  Sex: Male

DRUGS (4)
  1. CLOZARIL [Suspect]
     Indication: SCHIZOPHRENIA
     Dosage: UNK UKN, UNK
     Route: 048
     Dates: start: 20130822
  2. CLOZARIL [Suspect]
     Dosage: UNK (OVERDOSE)
     Route: 048
  3. AMISULPRIDE [Concomitant]
     Indication: BIPOLAR DISORDER
     Dosage: 600 MG, UNK
     Route: 048
     Dates: start: 20131003
  4. CITALOPRAM [Concomitant]
     Indication: AFFECTIVE DISORDER
     Dosage: 40 MG, UNK
     Route: 048
     Dates: start: 20131003

REACTIONS (4)
  - Completed suicide [Fatal]
  - Overdose [Unknown]
  - Neutrophil count increased [Unknown]
  - White blood cell count increased [Unknown]
